FAERS Safety Report 5862759-6 (Version None)
Quarter: 2008Q3

REPORT INFORMATION
  Report Type: 
  Country: None (occurrence: None)
  Receive Date: 20080828
  Receipt Date: 20080822
  Transmission Date: 20090109
  Serious: Yes (Other)
  Sender: FDA-Public Use
  Company Number: DK-JNJFOC-20080805095

PATIENT
  Sex: Female

DRUGS (6)
  1. REMICADE [Suspect]
     Dosage: WEEK 8
     Route: 042
  2. REMICADE [Suspect]
     Dosage: WEEK 6
     Route: 042
  3. REMICADE [Suspect]
     Dosage: WEEK 2
     Route: 042
  4. REMICADE [Suspect]
     Indication: PSORIATIC ARTHROPATHY
     Dosage: WEEK 0
     Route: 042
  5. METHOTREXATE SODIUM [Concomitant]
  6. METHOTREXATE SODIUM [Concomitant]

REACTIONS (4)
  - CHEST DISCOMFORT [None]
  - FLUSHING [None]
  - INFUSION RELATED REACTION [None]
  - PARAESTHESIA [None]
